FAERS Safety Report 5454763-7 (Version None)
Quarter: 2007Q3

REPORT INFORMATION
  Report Type: 
  Country: None (occurrence: None)
  Receive Date: 20070917
  Receipt Date: 20060818
  Transmission Date: 20080115
  Serious: No
  Sender: FDA-Public Use
  Company Number: US-ASTRAZENECA-2006UW16529

PATIENT
  Age: 36 Year
  Sex: Male

DRUGS (2)
  1. SEROQUEL [Suspect]
     Dosage: 100 MG AM, 300 MG HS
     Route: 048
  2. KLONOPIN [Suspect]

REACTIONS (1)
  - NIGHTMARE [None]
